FAERS Safety Report 9171313 (Version 2)
Quarter: 2013Q2

REPORT INFORMATION
  Report Type: Spontaneous
  Country: NG (occurrence: NG)
  Receive Date: 20130319
  Receipt Date: 20130531
  Transmission Date: 20140414
  Serious: Yes (Death)
  Sender: FDA-Public Use
  Company Number: NG-ROCHE-1202233

PATIENT
  Sex: Male

DRUGS (2)
  1. MABTHERA [Suspect]
     Indication: DIFFUSE LARGE B-CELL LYMPHOMA
     Dosage: DATE OF LAST DOSE: MAR/2013, DOSAGE: APP.500 MG.
     Route: 065
     Dates: start: 201212
  2. MABTHERA [Suspect]
     Indication: NON-HODGKIN^S LYMPHOMA

REACTIONS (7)
  - Blindness [Fatal]
  - Hypoacusis [Fatal]
  - Leukaemia [Unknown]
  - Disease progression [Fatal]
  - Vomiting [Recovering/Resolving]
  - Rash [Recovering/Resolving]
  - Asthenia [Recovering/Resolving]
